FAERS Safety Report 8566426 (Version 3)
Quarter: 2012Q4

REPORT INFORMATION
  Report Type: 
  Country: US (occurrence: US)
  Receive Date: 20120517
  Receipt Date: 20120917
  Transmission Date: 20130627
  Serious: Yes (Hospitalization)
  Sender: FDA-Public Use
  Company Number: US-US-EMD SERONO, INC.-7131966

PATIENT
  Sex: Female
  Weight: 73 kg

DRUGS (2)
  1. REBIF [Suspect]
     Indication: MULTIPLE SCLEROSIS
     Route: 058
     Dates: start: 201104, end: 201204
  2. REBIF [Suspect]
     Route: 058
     Dates: end: 201206

REACTIONS (5)
  - Loss of consciousness [Recovering/Resolving]
  - Sepsis [Recovering/Resolving]
  - Exostosis [Recovering/Resolving]
  - Incision site infection [Recovering/Resolving]
  - Asthenia [Not Recovered/Not Resolved]
